FAERS Safety Report 11241751 (Version 1)
Quarter: 2015Q3

REPORT INFORMATION
  Report Type: Spontaneous
  Country: US (occurrence: US)
  Receive Date: 20150706
  Receipt Date: 20150706
  Transmission Date: 20151125
  Serious: No
  Sender: FDA-Public Use
  Company Number: US-DSJP-DSU-2014-118423

PATIENT
  Sex: Male

DRUGS (3)
  1. WELCHOL [Suspect]
     Active Substance: COLESEVELAM HYDROCHLORIDE
     Dosage: 1.875 G, QD
     Route: 048
  2. WELCHOL [Suspect]
     Active Substance: COLESEVELAM HYDROCHLORIDE
     Indication: DIARRHOEA
     Dosage: 625 MG, QD
     Route: 048
  3. WELCHOL [Suspect]
     Active Substance: COLESEVELAM HYDROCHLORIDE
     Indication: DIARRHOEA
     Dosage: 3.75 G, QD
     Route: 048

REACTIONS (5)
  - Diarrhoea [Recovered/Resolved]
  - Pain [Not Recovered/Not Resolved]
  - Off label use [Recovered/Resolved]
  - Dyspepsia [Recovered/Resolved]
  - Constipation [Not Recovered/Not Resolved]

NARRATIVE: CASE EVENT DATE: 201102
